FAERS Safety Report 6138966-4 (Version None)
Quarter: 2009Q1

REPORT INFORMATION
  Report Type: 
  Country: None (occurrence: None)
  Receive Date: 20090324
  Receipt Date: 20090316
  Transmission Date: 20090719
  Serious: Yes (Death, Life-Threatening, Hospitalization, Disabling, Other)
  Sender: FDA-Public Use
  Company Number: 2009-00264

PATIENT
  Age: 51 Year
  Sex: Female
  Weight: 69 kg

DRUGS (10)
  1. VELCADE [Suspect]
     Indication: MULTIPLE MYELOMA
     Dosage: 2.4 MG ; 2.4 MG
     Dates: start: 20090106, end: 20090113
  2. VELCADE [Suspect]
     Indication: MULTIPLE MYELOMA
     Dosage: 2.4 MG ; 2.4 MG
     Dates: start: 20090127, end: 20090203
  3. CNT0328(CNT0328) VIAL [Suspect]
     Indication: MULTIPLE MYELOMA
     Dosage: 435 MG
     Dates: start: 20090106, end: 20090106
  4. PLACEBO() [Suspect]
     Indication: MULTIPLE MYELOMA
     Dosage: 435 MG
     Dates: start: 20090106, end: 20090106
  5. OXYCODONE HCL [Concomitant]
  6. FUROSEMIDE [Concomitant]
  7. LEVOFLOXACIN [Concomitant]
  8. METOCLOPRAMIDE [Concomitant]
  9. VALACYCLOVIR [Concomitant]
  10. PANTOPRAZOLE SODIUM [Concomitant]

REACTIONS (46)
  - ARRHYTHMIA [None]
  - ASTHENIA [None]
  - ATELECTASIS [None]
  - BACK PAIN [None]
  - BACTERIAL INFECTION [None]
  - CARDIAC FAILURE [None]
  - CARDIO-RESPIRATORY ARREST [None]
  - CARDIOGENIC SHOCK [None]
  - COGNITIVE DISORDER [None]
  - COMA [None]
  - COUGH [None]
  - DEPRESSED LEVEL OF CONSCIOUSNESS [None]
  - DIASTOLIC DYSFUNCTION [None]
  - DROOLING [None]
  - DYSPHAGIA [None]
  - DYSPHONIA [None]
  - DYSPNOEA [None]
  - DYSPNOEA AT REST [None]
  - DYSPNOEA EXERTIONAL [None]
  - EASTERN COOPERATIVE ONCOLOGY GROUP PERFORMANCE STATUS WORSENED [None]
  - FACIAL PALSY [None]
  - GAIT DISTURBANCE [None]
  - HUMERUS FRACTURE [None]
  - HYPERURICAEMIA [None]
  - LUNG CONSOLIDATION [None]
  - LUNG INFILTRATION [None]
  - MEDIASTINAL SHIFT [None]
  - MEMORY IMPAIRMENT [None]
  - MULTIPLE MYELOMA [None]
  - OEDEMA PERIPHERAL [None]
  - ORAL DISORDER [None]
  - PERICARDIAL EFFUSION [None]
  - PLEURAL EFFUSION [None]
  - PLEURAL FIBROSIS [None]
  - PNEUMONIA [None]
  - PULMONARY OEDEMA [None]
  - PUPIL FIXED [None]
  - RENAL FAILURE ACUTE [None]
  - RESPIRATORY FAILURE [None]
  - ROAD TRAFFIC ACCIDENT [None]
  - SPUTUM CULTURE POSITIVE [None]
  - STAPHYLOCOCCAL INFECTION [None]
  - SUPRAVENTRICULAR TACHYCARDIA [None]
  - TACHYPNOEA [None]
  - TUMOUR LYSIS SYNDROME [None]
  - URINE OUTPUT DECREASED [None]
